FAERS Safety Report 5887002-3 (Version None)
Quarter: 2008Q3

REPORT INFORMATION
  Report Type: 
  Country: None (occurrence: None)
  Receive Date: 20080917
  Receipt Date: 20080904
  Transmission Date: 20090109
  Serious: Yes (Death, Hospitalization)
  Sender: FDA-Public Use
  Company Number: GB-ELI_LILLY_AND_COMPANY-GB200705006131

PATIENT
  Sex: Female
  Weight: 76 kg

DRUGS (3)
  1. FLUOXETINE [Suspect]
     Indication: DEPRESSION
     Dosage: 20 MG, UNK
     Route: 048
  2. FLUOXETINE [Suspect]
     Dosage: 60 MG, UNK
     Route: 048
  3. OLANZAPINE [Suspect]
     Dosage: 20 MG, EACH EVENING
     Dates: start: 20040105, end: 20050201

REACTIONS (10)
  - CONFUSIONAL STATE [None]
  - DRUG TOXICITY [None]
  - HOSPITALISATION [None]
  - HYPERTONIA [None]
  - MALAISE [None]
  - PNEUMONIA [None]
  - SPEECH DISORDER [None]
  - THINKING ABNORMAL [None]
  - URINARY TRACT INFECTION [None]
  - VOMITING [None]
